FAERS Safety Report 25341859 (Version 2)
Quarter: 2025Q2

REPORT INFORMATION
  Report Type: Spontaneous
  Country: IT (occurrence: IT)
  Receive Date: 20250521
  Receipt Date: 20250625
  Transmission Date: 20250717
  Serious: Yes (Hospitalization)
  Sender: EISAI
  Company Number: None

PATIENT
  Age: 71 Year
  Sex: Female
  Weight: 57 kg

DRUGS (1)
  1. LENVIMA [Suspect]
     Active Substance: LENVATINIB
     Indication: Clear cell renal cell carcinoma
     Dates: start: 20241015, end: 20250316

REACTIONS (4)
  - Asthenia [Recovered/Resolved]
  - Hypothyroidism [Recovered/Resolved]
  - Proteinuria [Not Recovered/Not Resolved]
  - Generalised oedema [Recovered/Resolved]

NARRATIVE: CASE EVENT DATE: 20250317
